FAERS Safety Report 25944116 (Version 2)
Quarter: 2025Q4

REPORT INFORMATION
  Report Type: Spontaneous
  Country: GB (occurrence: GB)
  Receive Date: 20251021
  Receipt Date: 20251112
  Transmission Date: 20260117
  Serious: Yes (Other)
  Sender: TEVA
  Company Number: GB-TEVA-VS-3383077

PATIENT
  Age: 57 Year
  Sex: Male

DRUGS (3)
  1. ARIPIPRAZOLE [Suspect]
     Active Substance: ARIPIPRAZOLE
     Indication: Hallucination, auditory
     Route: 048
  2. ARIPIPRAZOLE [Suspect]
     Active Substance: ARIPIPRAZOLE
     Indication: Hallucination, auditory
     Dosage: DOSE TITRATED TO 15MG DAILY OVER A TWO-WEEK PERIOD
     Route: 048
  3. THIAMINE [Concomitant]
     Active Substance: THIAMINE
     Indication: Product used for unknown indication
     Dosage: TIME INTERVAL: 0.33333333 DAYS: THREE TIMES DAILY
     Route: 065

REACTIONS (1)
  - Hypersexuality [Recovered/Resolved]
